FAERS Safety Report 6435770-4 (Version None)
Quarter: 2009Q4

REPORT INFORMATION
  Report Type: 
  Country: None (occurrence: None)
  Receive Date: 20091110
  Receipt Date: 20080624
  Transmission Date: 20100525
  Serious: No
  Sender: FDA-Public Use
  Company Number: AECAN200800145

PATIENT
  Age: 25 Year
  Sex: Male
  Weight: 68 kg

DRUGS (12)
  1. GAMUNEX [Suspect]
     Indication: AMYOTROPHIC LATERAL SCLEROSIS
     Dosage: 35 GM;1X;IV
     Route: 042
     Dates: start: 20080611, end: 20080615
  2. GAMUNEX [Suspect]
  3. GAMUNEX [Suspect]
  4. GAMUNEX [Suspect]
     Indication: AMYOTROPHIC LATERAL SCLEROSIS
     Dosage: 20 GM;1X;IV
     Route: 042
     Dates: start: 20080612, end: 20080612
  5. PREDNISONE [Concomitant]
  6. VITAMIN D [Concomitant]
  7. LITHIUM [Concomitant]
  8. RILUZOLE [Concomitant]
  9. COENZYME Q10 [Concomitant]
  10. RANITIDINE [Concomitant]
  11. CALCIUM CARBONATE [Concomitant]
  12. ACTUVEL [Concomitant]

REACTIONS (1)
  - HAEMOLYTIC ANAEMIA [None]
